FAERS Safety Report 6193319-8 (Version None)
Quarter: 2009Q2

REPORT INFORMATION
  Report Type: 
  Country: None (occurrence: None)
  Receive Date: 20090513
  Receipt Date: 20090513
  Transmission Date: 20091009
  Serious: Yes (Disabling)
  Sender: FDA-Public Use
  Company Number: None

PATIENT
  Sex: Female

DRUGS (2)
  1. MAGNEVIST [Suspect]
     Indication: NUCLEAR MAGNETIC RESONANCE IMAGING
     Dosage: 40 ML 1 IV
     Route: 042
     Dates: start: 20060912
  2. OMNISCAN [Suspect]
     Indication: NUCLEAR MAGNETIC RESONANCE IMAGING
     Dosage: 17 ML 1 IV
     Route: 042
     Dates: start: 20061011

REACTIONS (3)
  - ASTHENIA [None]
  - NEPHROGENIC SYSTEMIC FIBROSIS [None]
  - RASH [None]
